FAERS Safety Report 18458154 (Version 2)
Quarter: 2020Q4

REPORT INFORMATION
  Report Type: Spontaneous
  Country: US (occurrence: US)
  Receive Date: 20201103
  Receipt Date: 20201117
  Transmission Date: 20210114
  Serious: Yes (Hospitalization)
  Sender: FDA-Public Use
  Company Number: US-ALKERMES INC.-ALK-2020-004807

PATIENT
  Age: 47 Year
  Sex: Male
  Weight: 92.97 kg

DRUGS (6)
  1. WELLBUTRIN [Concomitant]
     Active Substance: BUPROPION HYDROCHLORIDE
     Indication: PRODUCT USED FOR UNKNOWN INDICATION
     Dosage: UNK
     Route: 065
  2. OTHER THERAPEUTIC PRODUCTS [Concomitant]
     Active Substance: UNSPECIFIED INGREDIENT
     Indication: DYSPEPSIA
     Dosage: UNK
     Route: 065
  3. TRAZODONE [Concomitant]
     Active Substance: TRAZODONE HYDROCHLORIDE
     Indication: PRODUCT USED FOR UNKNOWN INDICATION
     Dosage: UNK
     Route: 065
  4. GABAPENTIN. [Concomitant]
     Active Substance: GABAPENTIN
     Indication: PRODUCT USED FOR UNKNOWN INDICATION
     Dosage: UNK
     Route: 065
  5. VIVITROL [Suspect]
     Active Substance: NALTREXONE
     Indication: DRUG DEPENDENCE
     Dosage: 380 MILLIGRAM, QMO
     Route: 030
     Dates: start: 20201014, end: 20201014
  6. KLONOPIN [Concomitant]
     Active Substance: CLONAZEPAM
     Indication: PRODUCT USED FOR UNKNOWN INDICATION
     Dosage: UNK
     Route: 065

REACTIONS (14)
  - Product administered at inappropriate site [Unknown]
  - Injection site warmth [Not Recovered/Not Resolved]
  - Injection site swelling [Not Recovered/Not Resolved]
  - Infection [Unknown]
  - Pyrexia [Recovered/Resolved]
  - Feeding disorder [Unknown]
  - Nausea [Unknown]
  - Headache [Unknown]
  - Malaise [Unknown]
  - Injection site reaction [Not Recovered/Not Resolved]
  - Injection site infection [Not Recovered/Not Resolved]
  - Injection site mass [Not Recovered/Not Resolved]
  - Needle issue [Recovered/Resolved]
  - Injection site pain [Not Recovered/Not Resolved]

NARRATIVE: CASE EVENT DATE: 202010
